FAERS Safety Report 5476230-7 (Version None)
Quarter: 2007Q3

REPORT INFORMATION
  Report Type: 
  Country: None (occurrence: None)
  Receive Date: 20070904
  Receipt Date: 20070529
  Transmission Date: 20080115
  Serious: No
  Sender: FDA-Public Use
  Company Number: PHEH2007US07990

PATIENT
  Age: 75 Year
  Sex: Female

DRUGS (1)
  1. ENABLEX [Suspect]
     Indication: DIARRHOEA
     Dosage: EVERY OTHER DAY, ORAL
     Route: 048
     Dates: start: 20070508

REACTIONS (1)
  - CONSTIPATION [None]
